FAERS Safety Report 24308520 (Version 1)
Quarter: 2024Q3

REPORT INFORMATION
  Report Type: Spontaneous
  Country: US (occurrence: None)
  Receive Date: 20240910
  Receipt Date: 20240910
  Transmission Date: 20241016
  Serious: No
  Sender: Public
  Company Number: None

PATIENT
  Age: 46 Year
  Sex: Male
  Weight: 139.5 kg

DRUGS (6)
  1. OCTAGAM IMMUNE GLOBULIN (HUMAN) [Suspect]
     Active Substance: HUMAN IMMUNOGLOBULIN G
     Route: 041
     Dates: start: 20240822, end: 20240910
  2. OCTAGAM IMMUNE GLOBULIN (HUMAN) [Suspect]
     Active Substance: HUMAN IMMUNOGLOBULIN G
     Route: 041
     Dates: start: 20240815, end: 20240910
  3. Octagam 20 gm lot M412C8541 [Concomitant]
     Dates: start: 20240716
  4. Octagam 5 gm  lot M341B8541 [Concomitant]
     Dates: start: 20240716
  5. Octagam 20 gm Lot  M406A8541 [Concomitant]
     Dates: start: 20240627
  6. Octagam 5 gm Lot M341B8541 [Concomitant]
     Dates: start: 20240627

REACTIONS (1)
  - Hepatitis B antibody positive [None]

NARRATIVE: CASE EVENT DATE: 20240822
